FAERS Safety Report 25444879 (Version 1)
Quarter: 2025Q2

REPORT INFORMATION
  Report Type: Spontaneous
  Country: GB (occurrence: GB)
  Receive Date: 20250617
  Receipt Date: 20250617
  Transmission Date: 20250717
  Serious: Yes (Life-Threatening, Other)
  Sender: HIKMA
  Company Number: None

PATIENT
  Age: 73 Year
  Sex: Female
  Weight: 80 kg

DRUGS (1)
  1. LEVOFLOXACIN [Suspect]
     Active Substance: LEVOFLOXACIN
     Indication: Pneumonia
     Route: 065
     Dates: start: 20250528, end: 20250528

REACTIONS (4)
  - Anaphylactic reaction [Recovered/Resolved]
  - Atrial fibrillation [Unknown]
  - Shock [Unknown]
  - Rash [Unknown]

NARRATIVE: CASE EVENT DATE: 20250528
